FAERS Safety Report 4883501-1 (Version None)
Quarter: 2006Q1

REPORT INFORMATION
  Report Type: 
  Country: None (occurrence: None)
  Receive Date: 20060118
  Receipt Date: 20050218
  Transmission Date: 20060701
  Serious: Yes (Hospitalization)
  Sender: FDA-Public Use
  Company Number: US-MERCK-0502USA02995

PATIENT
  Age: 66 Year
  Sex: Female
  Weight: 73 kg

DRUGS (5)
  1. VIOXX [Suspect]
     Indication: ARTHRALGIA
     Route: 048
     Dates: start: 20020101, end: 20030101
  2. VIOXX [Suspect]
     Route: 048
     Dates: start: 20020101, end: 20030101
  3. VIOXX [Suspect]
     Route: 048
     Dates: start: 20020101, end: 20030101
  4. ZOCOR [Concomitant]
     Route: 065
  5. PREMARIN [Concomitant]
     Route: 065

REACTIONS (2)
  - ARTHRITIS [None]
  - MYOCARDIAL INFARCTION [None]
